FAERS Safety Report 21632524 (Version 1)
Quarter: 2022Q4

REPORT INFORMATION
  Report Type: Spontaneous
  Country: US (occurrence: None)
  Receive Date: 20221122
  Receipt Date: 20221122
  Transmission Date: 20230113
  Serious: Yes (Hospitalization)
  Sender: FDA-Public Use
  Company Number: None

PATIENT
  Sex: Female

DRUGS (1)
  1. COPAXONE [Suspect]
     Active Substance: GLATIRAMER ACETATE
     Indication: Multiple sclerosis
     Dosage: 40MG 3 TIMES A WEEK SUBCUTANEOUS?
     Route: 058

REACTIONS (3)
  - Fall [None]
  - Rib fracture [None]
  - Traumatic lung injury [None]
